FAERS Safety Report 8683042 (Version 4)
Quarter: 2013Q1

REPORT INFORMATION
  Report Type: Spontaneous
  Country: US (occurrence: US)
  Receive Date: 20120725
  Receipt Date: 20130308
  Transmission Date: 20140127
  Serious: No
  Sender: FDA-Public Use
  Company Number: US-ASTRAZENECA-2012SE48564

PATIENT
  Age: 72 Year
  Sex: Female
  Weight: 44.5 kg

DRUGS (7)
  1. SYMBICORT [Suspect]
     Indication: EMPHYSEMA
     Dosage: 160/4.5, TWO PUFF BID
     Route: 055
  2. SYMBICORT [Suspect]
     Indication: EMPHYSEMA
     Dosage: 160/4.5, ONE PUFF BID
     Route: 055
     Dates: start: 201203
  3. SYMBICORT [Suspect]
     Indication: EMPHYSEMA
     Dosage: 160/4.5 MCG, TWO PUFFS TWO TIMES A DAY
     Route: 055
     Dates: start: 2012
  4. CALCITONIN [Concomitant]
  5. SYNTHROID [Concomitant]
     Indication: THYROID DISORDER
     Route: 048
  6. ZOPANEX [Concomitant]
     Indication: PROPHYLAXIS
     Dosage: PRN
     Route: 055
  7. FOSAMAX [Concomitant]
     Indication: BONE DENSITY DECREASED
     Route: 048
     Dates: start: 2012

REACTIONS (16)
  - Feeling abnormal [Unknown]
  - Accidental exposure to product [Unknown]
  - Dyspnoea [Recovered/Resolved]
  - Flushing [Recovered/Resolved]
  - Feeling hot [Recovered/Resolved]
  - Dry mouth [Recovered/Resolved]
  - Headache [Unknown]
  - Palpitations [Recovered/Resolved]
  - Palpitations [Recovered/Resolved]
  - Throat tightness [Recovered/Resolved]
  - Throat irritation [Recovered/Resolved]
  - Exercise tolerance decreased [Recovered/Resolved]
  - Circumstance or information capable of leading to medication error [Unknown]
  - Intentional drug misuse [Unknown]
  - Drug effect incomplete [Recovered/Resolved]
  - Off label use [Unknown]
